FAERS Safety Report 8286063-4 (Version None)
Quarter: 2012Q2

REPORT INFORMATION
  Report Type: 
  Country: None (occurrence: None)
  Receive Date: 20120416
  Receipt Date: 20120404
  Transmission Date: 20120825
  Serious: No
  Sender: FDA-Public Use
  Company Number: US-BIOGENIDEC-2012BI001942

PATIENT
  Sex: Female

DRUGS (2)
  1. TYSABRI [Suspect]
     Indication: MULTIPLE SCLEROSIS
     Route: 042
     Dates: start: 20080326
  2. AVONEX [Concomitant]
     Indication: MULTIPLE SCLEROSIS
     Route: 030

REACTIONS (6)
  - DEPRESSED MOOD [None]
  - CELLULITIS [None]
  - PSYCHOMOTOR HYPERACTIVITY [None]
  - FALL [None]
  - MULTIPLE SCLEROSIS [None]
  - OBSESSIVE-COMPULSIVE DISORDER [None]
